FAERS Safety Report 20710672 (Version 1)
Quarter: 2022Q2

REPORT INFORMATION
  Report Type: Spontaneous
  Country: CN (occurrence: CN)
  Receive Date: 20220414
  Receipt Date: 20220414
  Transmission Date: 20220721
  Serious: Yes (Other)
  Sender: FDA-Public Use
  Company Number: CN-009507513-2204CHN005129

PATIENT
  Age: 77 Year
  Sex: Male
  Weight: 51 kg

DRUGS (2)
  1. CILASTATIN SODIUM\IMIPENEM [Suspect]
     Active Substance: CILASTATIN SODIUM\IMIPENEM
     Indication: Anti-infective therapy
     Dosage: 0.5 G, FREQUENCY: 4 TIMES A DAY (QID)
     Route: 041
     Dates: start: 20220305, end: 20220305
  2. ORNIDAZOLE [Concomitant]
     Active Substance: ORNIDAZOLE
     Indication: Anti-infective therapy
     Dosage: 0.5 GRAM, QD
     Route: 041
     Dates: start: 20220305, end: 20220305

REACTIONS (1)
  - Delirium [Recovering/Resolving]

NARRATIVE: CASE EVENT DATE: 20220305
